FAERS Safety Report 11399636 (Version 1)
Quarter: 2015Q3

REPORT INFORMATION
  Report Type: Other
  Country: IT (occurrence: IT)
  Receive Date: 20150820
  Receipt Date: 20150820
  Transmission Date: 20151125
  Serious: Yes (Hospitalization)
  Sender: FDA-Public Use
  Company Number: IT-MYLANLABS-2015M1027070

PATIENT

DRUGS (2)
  1. DIAZEPAM. [Suspect]
     Active Substance: DIAZEPAM
     Indication: PRODUCT USED FOR UNKNOWN INDICATION
     Dosage: 40 ML, TOTAL
     Route: 048
     Dates: start: 20150719, end: 20150719
  2. ENTUMIN [Suspect]
     Active Substance: CLOTHIAPINE
     Indication: PRODUCT USED FOR UNKNOWN INDICATION
     Dosage: 30 ML, TOTAL
     Route: 048
     Dates: start: 20150719, end: 20150719

REACTIONS (5)
  - Intentional self-injury [Unknown]
  - Speech disorder [Unknown]
  - Drug abuse [Unknown]
  - Sopor [Unknown]
  - Bradyphrenia [Unknown]

NARRATIVE: CASE EVENT DATE: 20150719
